FAERS Safety Report 5279692-3 (Version None)
Quarter: 2007Q1

REPORT INFORMATION
  Report Type: 
  Country: None (occurrence: None)
  Receive Date: 20070323
  Receipt Date: 20070309
  Transmission Date: 20070707
  Serious: Yes (Other)
  Sender: FDA-Public Use
  Company Number: PAR_1420_2007

PATIENT
  Age: 49 Year
  Sex: Female
  Weight: 88.4514 kg

DRUGS (5)
  1. CABERGOLINE [Suspect]
     Indication: PITUITARY TUMOUR
     Dosage: 0.5 MG ONCE PO
     Route: 048
  2. CABERGOLINE [Suspect]
     Indication: PITUITARY TUMOUR
     Dosage: 0.5 MG ONCE PO
     Route: 048
     Dates: start: 20070201
  3. CABERGOLINE [Suspect]
     Indication: PITUITARY TUMOUR
     Dosage: 0.5 MG ONCE PO
     Route: 048
     Dates: start: 20070207
  4. CABERGOLINE [Suspect]
     Indication: PITUITARY TUMOUR
     Dosage: 0.5 MG ONCE PO
     Route: 048
     Dates: start: 20070303
  5. CALCIUM SUPPLEMENTS [Concomitant]

REACTIONS (4)
  - FEELING ABNORMAL [None]
  - MENORRHAGIA [None]
  - MUSCLE SPASMS [None]
  - THROMBOSIS [None]
